FAERS Safety Report 10488365 (Version 1)
Quarter: 2014Q4

REPORT INFORMATION
  Report Type: Spontaneous
  Country: US (occurrence: None)
  Receive Date: 20141001
  Receipt Date: 20141001
  Transmission Date: 20150528
  Serious: Yes (Hospitalization)
  Sender: FDA-Public Use
  Company Number: None

PATIENT
  Age: 60 Year
  Sex: Male

DRUGS (7)
  1. INSULIN [Concomitant]
     Active Substance: INSULIN NOS
  2. AMLODIPINE [Concomitant]
     Active Substance: AMLODIPINE BESYLATE
  3. MIDNITE PM [Suspect]
     Active Substance: DIETARY SUPPLEMENT
     Indication: SLEEP DISORDER THERAPY
     Dates: start: 20131201, end: 20131208
  4. ASPIRIN. [Concomitant]
     Active Substance: ASPIRIN
  5. BUPROPION [Concomitant]
     Active Substance: BUPROPION
  6. MELATONIN [Suspect]
     Active Substance: MELATONIN
  7. LEVOTHYROXINE [Concomitant]
     Active Substance: LEVOTHYROXINE

REACTIONS (2)
  - Drug-induced liver injury [None]
  - Hepatitis cholestatic [None]

NARRATIVE: CASE EVENT DATE: 20131208
